FAERS Safety Report 10062823 (Version 1)
Quarter: 2014Q2

REPORT INFORMATION
  Report Type: Spontaneous
  Country: US (occurrence: US)
  Receive Date: 20140407
  Receipt Date: 20140407
  Transmission Date: 20141212
  Serious: No
  Sender: FDA-Public Use
  Company Number: US-PFIZER INC-2014096931

PATIENT
  Age: 78 Year
  Sex: Female
  Weight: 68.03 kg

DRUGS (1)
  1. ADVIL [Suspect]
     Indication: ARTHRITIS
     Dosage: UNK

REACTIONS (3)
  - Hypersensitivity [Unknown]
  - Oral discomfort [Unknown]
  - Hearing impaired [Unknown]
